FAERS Safety Report 8217676-3 (Version None)
Quarter: 2012Q1

REPORT INFORMATION
  Report Type: 
  Country: None (occurrence: None)
  Receive Date: 20120315
  Receipt Date: 20120309
  Transmission Date: 20120608
  Serious: Yes (Hospitalization)
  Sender: FDA-Public Use
  Company Number: 1215959

PATIENT
  Age: 82 Year
  Sex: Female

DRUGS (3)
  1. VANCOMYCIN HYDROCHLORIDE [Suspect]
     Indication: SOFT TISSUE INFECTION
     Dosage: 1 G TWICE DAILY, INTRAVENOUS
     Route: 036
  2. MEROPENEM [Concomitant]
  3. RIFAMPICIN [Concomitant]

REACTIONS (6)
  - BRADYCARDIA [None]
  - RENAL FAILURE ACUTE [None]
  - HYPERKALAEMIA [None]
  - ACCIDENTAL OVERDOSE [None]
  - DISTURBANCE IN ATTENTION [None]
  - HYPOTENSION [None]
